FAERS Safety Report 4525317-1 (Version None)
Quarter: 2004Q4

REPORT INFORMATION
  Report Type: 
  Country: None (occurrence: None)
  Receive Date: 20041116
  Receipt Date: 20040812
  Transmission Date: 20050328
  Serious: No
  Sender: FDA-Public Use
  Company Number: S04-USA-05748-01

PATIENT
  Age: 74 Year
  Sex: Female

DRUGS (12)
  1. NAMENDA [Suspect]
     Dosage: 5 MG QD; PO
     Route: 048
     Dates: start: 20040101, end: 20040101
  2. NAMENDA [Suspect]
     Dosage: 10 MG QD; PO
     Route: 048
     Dates: start: 20040401
  3. REMINYL [Suspect]
     Indication: APHASIA
     Dosage: 6 MG BID; PO
     Route: 048
     Dates: start: 20030401
  4. SYNTHROID [Concomitant]
  5. ZESTRIL [Concomitant]
  6. ADALT (NIFEDIPINE) [Concomitant]
  7. PRAVACHOL [Concomitant]
  8. HUMALOG [Concomitant]
  9. LANTUS [Concomitant]
  10. VITAMIN E [Concomitant]
  11. FULIC ACID [Concomitant]
  12. COMPLEX [Concomitant]

REACTIONS (5)
  - DIZZINESS [None]
  - FEELING ABNORMAL [None]
  - FEELING HOT [None]
  - SPEECH DISORDER [None]
  - THINKING ABNORMAL [None]
